FAERS Safety Report 7206109-1 (Version None)
Quarter: 2010Q4

REPORT INFORMATION
  Report Type: 
  Country: None (occurrence: None)
  Receive Date: 20101228
  Receipt Date: 20101228
  Transmission Date: 20110411
  Serious: Yes (Other)
  Sender: FDA-Public Use
  Company Number: None

PATIENT
  Age: 9 Month
  Sex: Female
  Weight: 2 kg

DRUGS (1)
  1. LANSOPRAZOLE [Suspect]
     Indication: GASTROOESOPHAGEAL REFLUX DISEASE
     Dosage: 1/2 SOLUTAB DIALY PO
     Route: 048
     Dates: start: 20100420, end: 20101220

REACTIONS (3)
  - CRYING [None]
  - PRODUCT SUBSTITUTION ISSUE [None]
  - REGURGITATION [None]
